FAERS Safety Report 6391320-2 (Version None)
Quarter: 2009Q4

REPORT INFORMATION
  Report Type: 
  Country: None (occurrence: None)
  Receive Date: 20091007
  Receipt Date: 20091001
  Transmission Date: 20100525
  Serious: Yes (Death, Other)
  Sender: FDA-Public Use
  Company Number: PHEH2009US09983

PATIENT
  Sex: Male

DRUGS (13)
  1. EXJADE [Suspect]
     Indication: CHRONIC MYELOID LEUKAEMIA
     Dosage: 1500 MG, QD
     Dates: start: 20081201, end: 20090701
  2. EXJADE [Suspect]
     Indication: IRON OVERLOAD
  3. EXJADE [Suspect]
     Indication: TRANSFUSION
  4. MAGNESIUM [Concomitant]
     Dosage: 500 MG, QD
     Route: 048
  5. CALCIUM [Concomitant]
     Dosage: 1000 MG, QD
     Route: 048
  6. POTASSIUM CHLORIDE [Concomitant]
     Dosage: 40 MEQ, QD
     Route: 048
  7. ALLOPURINOL [Concomitant]
     Dosage: 300 MG, QD
     Route: 048
  8. LASIX [Concomitant]
     Dosage: 20 MG, BID
     Route: 048
  9. CHEMOTHERAPEUTICS NOS [Concomitant]
     Indication: CHRONIC MYELOID LEUKAEMIA
     Dosage: UNK
     Dates: start: 20080501
  10. GLEEVEC [Concomitant]
     Indication: CHRONIC MYELOID LEUKAEMIA
  11. HYDREA [Concomitant]
     Indication: CHRONIC MYELOID LEUKAEMIA
  12. CYTOXAN [Concomitant]
     Indication: CHRONIC MYELOID LEUKAEMIA
  13. INTERFERON [Concomitant]
     Indication: CHRONIC MYELOID LEUKAEMIA

REACTIONS (11)
  - BLOOD CREATININE INCREASED [None]
  - BLOOD POTASSIUM DECREASED [None]
  - BLOOD UREA DECREASED [None]
  - CHRONIC MYELOID LEUKAEMIA [None]
  - HAEMATOCRIT DECREASED [None]
  - HAEMOGLOBIN DECREASED [None]
  - MALIGNANT NEOPLASM PROGRESSION [None]
  - PLATELET COUNT DECREASED [None]
  - RENAL FAILURE [None]
  - VENTRICULAR EXTRASYSTOLES [None]
  - WHITE BLOOD CELL COUNT INCREASED [None]
